FAERS Safety Report 9407423 (Version 1)
Quarter: 2013Q3

REPORT INFORMATION
  Report Type: Spontaneous
  Country: IT (occurrence: IT)
  Receive Date: 20130718
  Receipt Date: 20130718
  Transmission Date: 20140515
  Serious: Yes (Hospitalization)
  Sender: FDA-Public Use
  Company Number: IT-PERRIGO-13IT007066

PATIENT
  Age: 64 Year
  Sex: Female

DRUGS (3)
  1. MESALAMINE RX 66.667 MG/ML 2N9 [Suspect]
     Indication: COLITIS ULCERATIVE
     Dosage: UNK, UNK
     Route: 065
  2. MESALAMINE RX 66.667 MG/ML 2N9 [Suspect]
     Indication: COLITIS
  3. LEVOTHYROXINE [Concomitant]
     Indication: HYPOTHYROIDISM
     Dosage: UNK
     Route: 065

REACTIONS (7)
  - Pure white cell aplasia [Recovered/Resolved]
  - Agranulocytosis [Recovered/Resolved]
  - Sepsis [Recovered/Resolved]
  - Lymphocytic infiltration [Recovered/Resolved]
  - Mucosal inflammation [Recovered/Resolved]
  - Local swelling [Recovered/Resolved]
  - Pyrexia [Recovered/Resolved]
